FAERS Safety Report 4486429-4 (Version None)
Quarter: 2004Q4

REPORT INFORMATION
  Report Type: 
  Country: None (occurrence: None)
  Receive Date: 20041026
  Receipt Date: 20041026
  Transmission Date: 20050328
  Serious: Yes (Death)
  Sender: FDA-Public Use
  Company Number: None

PATIENT
  Sex: Male
  Weight: 83.9154 kg

DRUGS (7)
  1. GEMCITABINE [Suspect]
     Indication: PANCREATIC CARCINOMA
     Dosage: 1920 MG IV WEEKLY
     Route: 042
     Dates: start: 20040927
  2. GEMCITABINE [Suspect]
     Indication: PANCREATIC CARCINOMA
     Dosage: 1920 MG IV WEEKLY
     Route: 042
     Dates: start: 20041018
  3. FENTANYL [Concomitant]
  4. ZOFRAN [Concomitant]
  5. VITAMIN E [Concomitant]
  6. FISH OIL [Concomitant]
  7. POLY MDA [Concomitant]

REACTIONS (3)
  - CARDIO-RESPIRATORY ARREST [None]
  - LOSS OF CONSCIOUSNESS [None]
  - PULMONARY EMBOLISM [None]
